FAERS Safety Report 9668791 (Version 4)
Quarter: 2013Q4

REPORT INFORMATION
  Report Type: Spontaneous
  Country: GB (occurrence: GB)
  Receive Date: 20131105
  Receipt Date: 20131210
  Transmission Date: 20140711
  Serious: Yes (Hospitalization, Other)
  Sender: FDA-Public Use
  Company Number: GB-BAYER-2013-131681

PATIENT
  Age: 46 Year
  Sex: Female

DRUGS (1)
  1. MIRENA [Suspect]
     Indication: DYSFUNCTIONAL UTERINE BLEEDING
     Dosage: 20 MCG/24HR, CONT
     Route: 015
     Dates: start: 20130716, end: 201308

REACTIONS (5)
  - Pelvic infection [Recovered/Resolved]
  - Chills [Recovered/Resolved]
  - Staphylococcal sepsis [Recovered/Resolved]
  - Pelvic abscess [Recovered/Resolved]
  - Tubo-ovarian abscess [Recovered/Resolved]
